FAERS Safety Report 9247044 (Version 2)
Quarter: 2013Q2

REPORT INFORMATION
  Report Type: Spontaneous
  Country: US (occurrence: US)
  Receive Date: 20130423
  Receipt Date: 20130509
  Transmission Date: 20140414
  Serious: Yes (Hospitalization)
  Sender: FDA-Public Use
  Company Number: US-BIOGENIDEC-2013BI034605

PATIENT
  Sex: Female
  Weight: 82 kg

DRUGS (10)
  1. AVONEX [Suspect]
     Indication: MULTIPLE SCLEROSIS
     Route: 030
     Dates: start: 20070412
  2. HCTZ [Concomitant]
  3. LEXAPRO [Concomitant]
  4. COMBIVENT [Concomitant]
  5. BIOTIN [Concomitant]
  6. SINGULAR [Concomitant]
  7. VITAMIN D3 [Concomitant]
  8. MOTRIN [Concomitant]
  9. FLEXORIL [Concomitant]
  10. FLAXSEED [Concomitant]

REACTIONS (9)
  - Hepatic steatosis [Unknown]
  - Liver function test abnormal [Unknown]
  - Musculoskeletal disorder [Recovered/Resolved]
  - Memory impairment [Not Recovered/Not Resolved]
  - Weight loss poor [Not Recovered/Not Resolved]
  - Balance disorder [Not Recovered/Not Resolved]
  - Influenza like illness [Not Recovered/Not Resolved]
  - Fatigue [Not Recovered/Not Resolved]
  - Decreased appetite [Not Recovered/Not Resolved]
